FAERS Safety Report 26216208 (Version 1)
Quarter: 2025Q4

REPORT INFORMATION
  Report Type: Spontaneous
  Country: US (occurrence: US)
  Receive Date: 20251231
  Receipt Date: 20251231
  Transmission Date: 20260117
  Serious: No
  Sender: ABBVIE
  Company Number: US-ABBVIE-6610906

PATIENT
  Sex: Female

DRUGS (1)
  1. CRINONE [Suspect]
     Active Substance: PROGESTERONE
     Indication: Infertility
     Route: 065

REACTIONS (1)
  - Product storage error [Unknown]
